FAERS Safety Report 5837363-6 (Version None)
Quarter: 2008Q3

REPORT INFORMATION
  Report Type: 
  Country: None (occurrence: None)
  Receive Date: 20080807
  Receipt Date: 20080731
  Transmission Date: 20090109
  Serious: Yes (Hospitalization)
  Sender: FDA-Public Use
  Company Number: US-ELI_LILLY_AND_COMPANY-US200808000103

PATIENT
  Sex: Female

DRUGS (3)
  1. HUMULIN 70/30 [Suspect]
     Dates: start: 20030101
  2. GLUCOPHAGE [Concomitant]
  3. OXYGEN [Concomitant]

REACTIONS (2)
  - BACK INJURY [None]
  - UPPER LIMB FRACTURE [None]
